FAERS Safety Report 16124205 (Version 1)
Quarter: 2019Q1

REPORT INFORMATION
  Report Type: Spontaneous
  Country: US (occurrence: US)
  Receive Date: 20190327
  Receipt Date: 20190327
  Transmission Date: 20190418
  Serious: Yes (Other)
  Sender: FDA-Public Use
  Company Number: US-ANIPHARMA-2018-US-009020

PATIENT
  Sex: Male

DRUGS (9)
  1. XOFIGO [Suspect]
     Active Substance: RADIUM RA-223 DICHLORIDE
  2. XTANDI [Suspect]
     Active Substance: ENZALUTAMIDE
  3. PREDNISONE. [Suspect]
     Active Substance: PREDNISONE
  4. JEVTANA [Suspect]
     Active Substance: CABAZITAXEL
     Dosage: 17 CYCLES
  5. CASODEX [Suspect]
     Active Substance: BICALUTAMIDE
     Indication: PROSTATE CANCER
  6. ZYTIGA [Suspect]
     Active Substance: ABIRATERONE ACETATE
  7. TAXOTERE [Suspect]
     Active Substance: DOCETAXEL
     Dosage: 6 CYCLES X 2
  8. CARBOPLATIN. [Suspect]
     Active Substance: CARBOPLATIN
     Dosage: 6 CYCLES
  9. LUPRON [Suspect]
     Active Substance: LEUPROLIDE ACETATE

REACTIONS (1)
  - Malignant neoplasm progression [Unknown]
